FAERS Safety Report 5716272-7 (Version None)
Quarter: 2008Q2

REPORT INFORMATION
  Report Type: 
  Country: None (occurrence: None)
  Receive Date: 20080424
  Receipt Date: 20080421
  Transmission Date: 20081010
  Serious: Yes (Other)
  Sender: FDA-Public Use
  Company Number: B0509616A

PATIENT
  Age: 79 Year
  Sex: Male

DRUGS (8)
  1. VALTREX [Suspect]
     Indication: HERPES ZOSTER
     Route: 048
     Dates: start: 20080214, end: 20080215
  2. NORVASK [Concomitant]
     Route: 048
     Dates: start: 20010214
  3. CIMETIDINE [Concomitant]
     Dosage: 800MG PER DAY
     Route: 065
     Dates: start: 20020619
  4. MAGNESIUM OXIDE [Concomitant]
     Dosage: 3G PER DAY
     Route: 048
     Dates: start: 20020619
  5. TANATRIL [Concomitant]
     Route: 048
     Dates: start: 20010214
  6. UNKNOWN DRUG [Concomitant]
     Route: 048
     Dates: start: 20070718
  7. APLACE [Concomitant]
     Dosage: 300MG PER DAY
     Route: 048
     Dates: start: 20021120
  8. GLIMICRON [Concomitant]
     Dosage: 120MG PER DAY
     Route: 048
     Dates: start: 20010221

REACTIONS (1)
  - DYSURIA [None]
